FAERS Safety Report 5881452-7 (Version None)
Quarter: 2008Q3

REPORT INFORMATION
  Report Type: 
  Country: None (occurrence: None)
  Receive Date: 20080912
  Receipt Date: 20080630
  Transmission Date: 20090109
  Serious: No
  Sender: FDA-Public Use
  Company Number: US-ABBOTT-08P-163-0460331-00

PATIENT
  Sex: Male
  Weight: 51.756 kg

DRUGS (9)
  1. HUMIRA [Suspect]
     Indication: CROHN'S DISEASE
     Dosage: 4 SHOTS EACH ON DAY 1
     Route: 058
     Dates: start: 20080314
  2. HUMIRA [Suspect]
     Dosage: 2 SHOTS TWO WEEKS LATER
     Route: 058
  3. HUMIRA [Suspect]
     Dosage: 1 SHOT TWO WEEKS LATER
     Route: 058
  4. HUMIRA [Suspect]
  5. MESALAMINE [Concomitant]
     Indication: CROHN'S DISEASE
     Route: 048
     Dates: start: 19900101
  6. ESZOPICLONE [Concomitant]
     Indication: SLEEP DISORDER THERAPY
     Route: 048
     Dates: start: 20070101
  7. LORAZEPAM [Concomitant]
     Indication: ANXIETY
     Route: 048
     Dates: start: 20070101
  8. RISEDRONATE SODIUM [Concomitant]
     Indication: CROHN'S DISEASE
     Route: 048
     Dates: start: 20080201
  9. DICYCLOMINE HCL [Concomitant]
     Indication: CROHN'S DISEASE
     Route: 048
     Dates: start: 20080629

REACTIONS (1)
  - DISTURBANCE IN ATTENTION [None]
